FAERS Safety Report 5896315-0 (Version None)
Quarter: 2008Q3

REPORT INFORMATION
  Report Type: 
  Country: None (occurrence: None)
  Receive Date: 20080924
  Receipt Date: 20080122
  Transmission Date: 20090109
  Serious: Yes (Hospitalization)
  Sender: FDA-Public Use
  Company Number: US-ASTRAZENECA-2007UW19659

PATIENT
  Age: 24 Year
  Sex: Female
  Weight: 99.8 kg

DRUGS (10)
  1. SEROQUEL [Suspect]
     Indication: SLEEP DISORDER
     Route: 048
     Dates: start: 20000101, end: 20060101
  2. SEROQUEL [Suspect]
     Indication: AFFECTIVE DISORDER
     Route: 048
     Dates: start: 20000101, end: 20060101
  3. ABILIFY [Concomitant]
  4. CLOZARIL [Concomitant]
  5. HALDOL [Concomitant]
  6. RISPERDAL [Concomitant]
  7. ZYPREXA [Concomitant]
  8. PROZAC [Concomitant]
  9. XANAX [Concomitant]
  10. DEPAKOTE [Concomitant]

REACTIONS (6)
  - ANXIETY [None]
  - BIPOLAR DISORDER [None]
  - DEPRESSION [None]
  - DIABETES MELLITUS [None]
  - OBESITY [None]
  - SCHIZOPHRENIA [None]
